FAERS Safety Report 17109958 (Version 5)
Quarter: 2020Q2

REPORT INFORMATION
  Report Type: Spontaneous
  Country: FR (occurrence: FR)
  Receive Date: 20191204
  Receipt Date: 20200402
  Transmission Date: 20200713
  Serious: Yes (Other)
  Sender: FDA-Public Use
  Company Number: NVSC2019FR055203

PATIENT
  Age: 58 Year
  Sex: Female

DRUGS (5)
  1. DARUNAVIR [Interacting]
     Active Substance: DARUNAVIR
     Indication: HIV INFECTION
     Dosage: 800 MG
     Route: 065
  2. RITONAVIR. [Concomitant]
     Active Substance: RITONAVIR
     Indication: HIV INFECTION
     Dosage: 100 MG
     Route: 065
  3. RITONAVIR. [Concomitant]
     Active Substance: RITONAVIR
     Indication: ANTIRETROVIRAL THERAPY
  4. QUETIAPINE FUMARATE. [Suspect]
     Active Substance: QUETIAPINE FUMARATE
     Indication: BIPOLAR DISORDER
     Dosage: 150 MG, QD
     Route: 065
  5. DARUNAVIR [Interacting]
     Active Substance: DARUNAVIR
     Indication: ANTIRETROVIRAL THERAPY

REACTIONS (7)
  - Drug interaction [Unknown]
  - Overdose [Unknown]
  - Psychomotor retardation [Unknown]
  - Contraindicated product administered [Unknown]
  - Syncope [Unknown]
  - Psychomotor skills impaired [Unknown]
  - Electrocardiogram QT prolonged [Unknown]
